FAERS Safety Report 8858564 (Version 1)
Quarter: 2012Q4

REPORT INFORMATION
  Report Type: 
  Country: FR (occurrence: FR)
  Receive Date: 20121024
  Receipt Date: 20121024
  Transmission Date: 20130627
  Serious: Yes (Hospitalization)
  Sender: FDA-Public Use
  Company Number: FR-PFIZER INC-2012257051

PATIENT
  Age: 57 Year
  Sex: Female

DRUGS (12)
  1. SALAZOPYRINE [Suspect]
     Indication: CROHN^S DISEASE
     Dosage: Unk
     Route: 048
     Dates: start: 20120620, end: 20120629
  2. ARAVA [Concomitant]
     Indication: RHEUMATOID ARTHRITIS
     Dosage: UNK
     Route: 048
     Dates: start: 2009, end: 20120629
  3. CORDARONE [Concomitant]
     Indication: VENTRICULAR TACHYCARDIA
     Dosage: 200 mg, daly, 5 days out of 7
     Route: 048
     Dates: end: 20120702
  4. TENORMINE [Concomitant]
     Indication: HYPERTENSION
     Dosage: 25 mg, 1x/day
     Route: 048
     Dates: end: 20120702
  5. LOVENOX [Concomitant]
     Indication: THROMBOSIS PROPHYLAXIS
     Dosage: UNK
     Route: 058
     Dates: start: 201205
  6. GAVISCON [Concomitant]
     Indication: GASTROOESOPHAGEAL REFLUX DISEASE
     Dosage: 3 DF, 1x/day
     Route: 048
     Dates: end: 20120702
  7. INEXIUM [Concomitant]
     Indication: GASTROOESOPHAGEAL REFLUX DISEASE
     Dosage: 40 mg, 1x/day
     Route: 048
  8. PARACETAMOL [Concomitant]
     Indication: PAIN
     Dosage: UNK
     Route: 048
  9. CACIT D3 [Concomitant]
     Indication: MINERAL SUPPLEMENTATION
     Dosage: 1 DF, 1x/day
     Route: 048
  10. ASPEGIC [Concomitant]
     Dosage: UNK
     Route: 048
     Dates: start: 20120702
  11. PRIMPERAN [Concomitant]
     Indication: NAUSEA
     Dosage: UNK
     Route: 048
     Dates: start: 20120702
  12. FIV-ASA [Concomitant]
     Indication: CROHN^S DISEASE
     Dosage: UNK
     Route: 048
     Dates: start: 20120525, end: 20120629

REACTIONS (3)
  - Hepatocellular injury [Recovered/Resolved]
  - Cholestasis [Not Recovered/Not Resolved]
  - Pancytopenia [Recovered/Resolved]
